FAERS Safety Report 25159619 (Version 1)
Quarter: 2025Q2

REPORT INFORMATION
  Report Type: Spontaneous
  Country: US (occurrence: US)
  Receive Date: 20250404
  Receipt Date: 20250404
  Transmission Date: 20250717
  Serious: Yes (Other)
  Sender: STRIDES
  Company Number: US-STRIDES ARCOLAB LIMITED-2025SP004212

PATIENT
  Age: 88 Year
  Sex: Male

DRUGS (3)
  1. PREDNISONE [Suspect]
     Active Substance: PREDNISONE
     Indication: Acute lymphocytic leukaemia
     Route: 065
  2. MERCAPTOPURINE [Suspect]
     Active Substance: MERCAPTOPURINE
     Indication: Acute lymphocytic leukaemia
     Route: 065
  3. AZACITIDINE [Suspect]
     Active Substance: AZACITIDINE
     Indication: Acute lymphocytic leukaemia
     Route: 065

REACTIONS (1)
  - Cardiac iron overload [Recovering/Resolving]
